FAERS Safety Report 12707403 (Version 2)
Quarter: 2017Q1

REPORT INFORMATION
  Report Type: Spontaneous
  Country: US (occurrence: US)
  Receive Date: 20160901
  Receipt Date: 20170113
  Transmission Date: 20170428
  Serious: Yes (Hospitalization)
  Sender: FDA-Public Use
  Company Number: US-BAYER-2016-066659

PATIENT
  Age: 64 Year
  Sex: Female

DRUGS (3)
  1. XARELTO [Suspect]
     Active Substance: RIVAROXABAN
     Dosage: 20 MG, UNK
     Route: 048
     Dates: start: 20140624, end: 201502
  2. XARELTO [Suspect]
     Active Substance: RIVAROXABAN
     Dosage: 20 MG, UNK
     Route: 048
     Dates: start: 20151030
  3. ACETYLSALICYLIC ACID({=100 MG) [Suspect]
     Active Substance: ASPIRIN
     Indication: PRODUCT USED FOR UNKNOWN INDICATION
     Dosage: 81 MG, QD
     Route: 048

REACTIONS (4)
  - Gastrointestinal haemorrhage [Recovered/Resolved]
  - Epistaxis [Recovered/Resolved]
  - Ischaemic stroke [Unknown]
  - Vaginal haemorrhage [Unknown]

NARRATIVE: CASE EVENT DATE: 20141108
